FAERS Safety Report 10985189 (Version 1)
Quarter: 2015Q2

REPORT INFORMATION
  Report Type: Spontaneous
  Country: US (occurrence: None)
  Receive Date: 20150403
  Receipt Date: 20150403
  Transmission Date: 20150821
  Serious: No
  Sender: FDA-Public Use
  Company Number: None

PATIENT
  Age: 68 Year
  Sex: Female

DRUGS (1)
  1. AFINITOR [Suspect]
     Active Substance: EVEROLIMUS
     Dosage: 5 MG (LAST MNTH 10 MG)
     Route: 048
     Dates: start: 20140204

REACTIONS (3)
  - Cough [None]
  - Dyspnoea [None]
  - Stomatitis [None]

NARRATIVE: CASE EVENT DATE: 20150331
